FAERS Safety Report 18501267 (Version 3)
Quarter: 2021Q3

REPORT INFORMATION
  Report Type: Report from Study
  Country: BR (occurrence: BR)
  Receive Date: 20201113
  Receipt Date: 20210930
  Transmission Date: 20211014
  Serious: Yes (Other)
  Sender: FDA-Public Use
  Company Number: BR-TAKEDA-BR201931767

PATIENT
  Age: 16 Year
  Sex: Male
  Weight: 63 kg

DRUGS (8)
  1. HEMO?8R [Suspect]
     Active Substance: ANTIHEMOPHILIC FACTOR, HUMAN RECOMBINANT
     Indication: FACTOR VIII DEFICIENCY
     Dosage: 1500 INTERNATIONAL UNIT, Q3WEEKS
     Route: 042
     Dates: end: 20190930
  2. HEMO?8R [Suspect]
     Active Substance: ANTIHEMOPHILIC FACTOR, HUMAN RECOMBINANT
     Dosage: 1500 INTERNATIONAL UNIT, Q3WEEKS
     Route: 042
     Dates: start: 20200529
  3. HEMO?8R [Suspect]
     Active Substance: ANTIHEMOPHILIC FACTOR, HUMAN RECOMBINANT
     Dosage: 1500 INTERNATIONAL UNIT, TID
     Route: 042
     Dates: end: 20190930
  4. HEMO?8R [Suspect]
     Active Substance: ANTIHEMOPHILIC FACTOR, HUMAN RECOMBINANT
     Dosage: 1500 INTERNATIONAL UNIT, QOD
     Route: 042
     Dates: start: 20080529
  5. HEMO?8R [Suspect]
     Active Substance: ANTIHEMOPHILIC FACTOR, HUMAN RECOMBINANT
     Dosage: 1500 INTERNATIONAL UNIT, Q3WEEKS
     Route: 042
     Dates: start: 20180529
  6. HEMO?8R [Suspect]
     Active Substance: ANTIHEMOPHILIC FACTOR, HUMAN RECOMBINANT
     Dosage: 1500 INTERNATIONAL UNIT, QD
     Route: 065
     Dates: start: 20190321
  7. HEMO?8R [Suspect]
     Active Substance: ANTIHEMOPHILIC FACTOR, HUMAN RECOMBINANT
     Dosage: 1500 INTERNATIONAL UNIT, 3/WEEK
     Route: 042
     Dates: start: 2008
  8. HEMO?8R [Suspect]
     Active Substance: ANTIHEMOPHILIC FACTOR, HUMAN RECOMBINANT
     Dosage: UNK UNK, Q3WEEKS
     Route: 042
     Dates: start: 20190930, end: 20190930

REACTIONS (18)
  - Influenza like illness [Recovered/Resolved]
  - Pharyngeal inflammation [Recovered/Resolved]
  - Drug ineffective [Unknown]
  - Haematoma [Recovering/Resolving]
  - Spinal pain [Recovered/Resolved]
  - Pain in extremity [Recovering/Resolving]
  - Inappropriate schedule of product administration [Unknown]
  - Joint lock [Unknown]
  - Peripheral swelling [Recovering/Resolving]
  - Oropharyngeal pain [Recovered/Resolved]
  - Chronic sinusitis [Recovered/Resolved]
  - Headache [Unknown]
  - Off label use [Unknown]
  - Abdominal pain [Unknown]
  - Pain [Recovering/Resolving]
  - Stress [Unknown]
  - Joint swelling [Unknown]
  - Arthralgia [Recovering/Resolving]

NARRATIVE: CASE EVENT DATE: 20200406
